FAERS Safety Report 20098557 (Version 1)
Quarter: 2021Q4

REPORT INFORMATION
  Report Type: Spontaneous
  Country: US (occurrence: US)
  Receive Date: 20211122
  Receipt Date: 20211122
  Transmission Date: 20220304
  Serious: Yes (Death, Hospitalization, Other)
  Sender: FDA-Public Use
  Company Number: US-PFIZER INC-202101573741

PATIENT
  Age: 60 Year
  Sex: Female

DRUGS (5)
  1. METHOTREXATE SODIUM [Interacting]
     Active Substance: METHOTREXATE SODIUM
     Indication: Systemic lupus erythematosus
     Dosage: 25 MG, WEEKLY
  2. RITUXIMAB [Interacting]
     Active Substance: RITUXIMAB
     Indication: Systemic lupus erythematosus
     Dosage: 25 MG, WEEKLY
  3. TOZINAMERAN [Interacting]
     Active Substance: TOZINAMERAN
     Indication: COVID-19 immunisation
     Dosage: DOSE 2, SINGLE
     Dates: start: 20210218, end: 20210218
  4. REMDESIVIR [Concomitant]
     Active Substance: REMDESIVIR
     Indication: Systemic lupus erythematosus
     Dosage: UNK
  5. APIXABAN [Concomitant]
     Active Substance: APIXABAN
     Indication: Atrial fibrillation
     Dosage: UNK

REACTIONS (4)
  - Drug interaction [Fatal]
  - Brain death [Fatal]
  - COVID-19 pneumonia [Fatal]
  - Off label use [Unknown]
